FAERS Safety Report 15276221 (Version 1)
Quarter: 2018Q3

REPORT INFORMATION
  Report Type: Report from Study
  Country: US (occurrence: US)
  Receive Date: 20180814
  Receipt Date: 20180814
  Transmission Date: 20181010
  Serious: Yes (Death, Life-Threatening, Hospitalization, Other)
  Sender: FDA-Public Use
  Company Number: PHHO2017US003529

PATIENT
  Age: 3 Year
  Sex: Male
  Weight: 15.8 kg

DRUGS (6)
  1. FLUDARABINE [Concomitant]
     Active Substance: FLUDARABINE PHOSPHATE
     Indication: ACUTE LYMPHOCYTIC LEUKAEMIA
     Dosage: 30 MG/M2, X 4 DAYS
     Route: 065
     Dates: start: 20170130, end: 20170202
  2. CYTOXAN [Concomitant]
     Active Substance: CYCLOPHOSPHAMIDE
     Indication: ACUTE LYMPHOCYTIC LEUKAEMIA
     Dosage: 500 MG/M2, X 2 DAYS
     Route: 065
     Dates: start: 20170130, end: 20170131
  3. KEPPRA [Concomitant]
     Active Substance: LEVETIRACETAM
     Indication: PROPHYLAXIS
     Dosage: 160 MG, BID
     Route: 048
     Dates: start: 20170207, end: 20170208
  4. KYMRIAH [Suspect]
     Active Substance: TISAGENLECLEUCEL
     Indication: ACUTE LYMPHOCYTIC LEUKAEMIA
     Dosage: 10 %,  (1.0E+07 TOTAL CELLS/KG, 3.63E+06 CART?19 CELLS/KG)
     Route: 042
     Dates: start: 20170207, end: 20170207
  5. KYMRIAH [Suspect]
     Active Substance: TISAGENLECLEUCEL
     Dosage: 30 % (3.0E+07 TOTAL CELLS/KG, 1.09E+07 CART?19 CELLS/KG)
     Route: 042
     Dates: start: 20170208, end: 20170208
  6. BACTRIM [Concomitant]
     Active Substance: SULFAMETHOXAZOLE\TRIMETHOPRIM
     Indication: PRODUCT USED FOR UNKNOWN INDICATION
     Dosage: 4.7 ML, BID SAT/SUN
     Route: 048
     Dates: start: 20161212

REACTIONS (12)
  - Capillary leak syndrome [Recovered/Resolved]
  - Febrile neutropenia [Recovered/Resolved]
  - Disseminated intravascular coagulation [Not Recovered/Not Resolved]
  - Acute kidney injury [Not Recovered/Not Resolved]
  - Hypotension [Recovered/Resolved]
  - Gastrointestinal haemorrhage [Recovered/Resolved]
  - Cytokine release syndrome [Recovered/Resolved]
  - Encephalopathy [Not Recovered/Not Resolved]
  - Brain oedema [Fatal]
  - Hypoxia [Not Recovered/Not Resolved]
  - Left ventricular dysfunction [Not Recovered/Not Resolved]
  - Central nervous system haemorrhage [Fatal]

NARRATIVE: CASE EVENT DATE: 20170208
